FAERS Safety Report 25868352 (Version 1)
Quarter: 2025Q4

REPORT INFORMATION
  Report Type: Spontaneous
  Country: CN (occurrence: CN)
  Receive Date: 20251001
  Receipt Date: 20251001
  Transmission Date: 20260117
  Serious: Yes (Other)
  Sender: ROCHE
  Company Number: CN-ROCHE-10000393569

PATIENT
  Age: 52 Year
  Sex: Female

DRUGS (6)
  1. HERCEPTIN [Suspect]
     Active Substance: TRASTUZUMAB
     Indication: Triple positive breast cancer
     Route: 065
  2. PERJETA [Suspect]
     Active Substance: PERTUZUMAB
     Indication: Triple positive breast cancer
     Route: 065
  3. KADCYLA [Suspect]
     Active Substance: ADO-TRASTUZUMAB EMTANSINE
     Indication: Triple positive breast cancer
     Route: 065
  4. PACLITAXEL [Suspect]
     Active Substance: PACLITAXEL
     Indication: Triple positive breast cancer
     Route: 065
  5. CARBOPLATIN [Suspect]
     Active Substance: CARBOPLATIN
     Indication: Triple positive breast cancer
     Route: 065
  6. EXEMESTANE [Suspect]
     Active Substance: EXEMESTANE
     Indication: Triple positive breast cancer
     Route: 065

REACTIONS (19)
  - Gastrointestinal disorder [Unknown]
  - Asthenia [Unknown]
  - Decreased appetite [Unknown]
  - Constipation [Recovering/Resolving]
  - Diarrhoea [Recovering/Resolving]
  - Pyrexia [Unknown]
  - Laryngopharyngitis [Unknown]
  - Cough [Unknown]
  - Rhinorrhoea [Unknown]
  - Glomerulonephritis chronic [Unknown]
  - Postoperative adhesion [Unknown]
  - Pain [Unknown]
  - Lymphoedema [Unknown]
  - Haematotoxicity [Recovered/Resolved]
  - Hepatic function abnormal [Recovered/Resolved]
  - Renal impairment [Recovered/Resolved]
  - Cardiac dysfunction [Recovered/Resolved]
  - Musculoskeletal stiffness [Unknown]
  - Hot flush [Unknown]
